FAERS Safety Report 17686818 (Version 1)
Quarter: 2020Q2

REPORT INFORMATION
  Report Type: Spontaneous
  Country: GB (occurrence: GB)
  Receive Date: 20200421
  Receipt Date: 20200421
  Transmission Date: 20200714
  Serious: Yes (Disabling)
  Sender: FDA-Public Use
  Company Number: GB-TEVA-2020-GB-1225327

PATIENT
  Age: 82 Year
  Sex: Male

DRUGS (11)
  1. CLOPIDOGREL [Concomitant]
     Active Substance: CLOPIDOGREL BISULFATE
  2. GABAPENTIN. [Concomitant]
     Active Substance: GABAPENTIN
  3. SALBUTAMOL [Concomitant]
     Active Substance: ALBUTEROL
  4. LANSOPRAZOLE. [Concomitant]
     Active Substance: LANSOPRAZOLE
  5. RAMIPRIL. [Concomitant]
     Active Substance: RAMIPRIL
  6. TRELEGY ELLIPTA [Concomitant]
     Active Substance: FLUTICASONE FUROATE\UMECLIDINIUM BROMIDE\VILANTEROL TRIFENATATE
  7. PARACETAMOL [Concomitant]
     Active Substance: ACETAMINOPHEN
  8. CIPROFLOXACIN HYDROCHLORIDE. [Suspect]
     Active Substance: CIPROFLOXACIN HYDROCHLORIDE
     Indication: PROSTATITIS
     Dosage: 1000 MG
     Route: 048
     Dates: start: 202002, end: 202002
  9. CIPROFLOXACIN HYDROCHLORIDE. [Suspect]
     Active Substance: CIPROFLOXACIN HYDROCHLORIDE
     Dosage: 1000 MG
     Route: 048
     Dates: start: 20200327, end: 20200331
  10. IVABRADINE [Concomitant]
     Active Substance: IVABRADINE
  11. ATORVASTATIN CALCIUM TRIHYDRATE [Concomitant]
     Active Substance: ATORVASTATIN CALCIUM

REACTIONS (3)
  - Vitreous detachment [Not Recovered/Not Resolved]
  - Vitreous floaters [Unknown]
  - Blindness [Unknown]

NARRATIVE: CASE EVENT DATE: 20200328
